FAERS Safety Report 15606946 (Version 2)
Quarter: 2018Q4

REPORT INFORMATION
  Report Type: Spontaneous
  Country: US (occurrence: US)
  Receive Date: 20181112
  Receipt Date: 20181205
  Transmission Date: 20190205
  Serious: Yes (Other)
  Sender: FDA-Public Use
  Company Number: US-JAZZ-2018-US-016290

PATIENT
  Age: 46 Year
  Sex: Female

DRUGS (1)
  1. XYREM [Suspect]
     Active Substance: SODIUM OXYBATE
     Indication: PRODUCT USED FOR UNKNOWN INDICATION
     Dosage: BETWEEN 7.5 GRAMS AND 15 GRAMS
     Route: 048

REACTIONS (8)
  - Wrong dose [Unknown]
  - Bradycardia [Recovered/Resolved]
  - Lethargy [Recovered/Resolved]
  - Coma [Recovered/Resolved]
  - Somnolence [Recovered/Resolved]
  - Narcolepsy [Unknown]
  - Blood pressure decreased [Unknown]
  - Respiratory depression [Unknown]

NARRATIVE: CASE EVENT DATE: 20181001
